FAERS Safety Report 7718240-2 (Version None)
Quarter: 2011Q3

REPORT INFORMATION
  Report Type: 
  Country: None (occurrence: None)
  Receive Date: 20110830
  Receipt Date: 20110822
  Transmission Date: 20111222
  Serious: Yes (Other)
  Sender: FDA-Public Use
  Company Number: PHEH2011US02284

PATIENT
  Sex: Female

DRUGS (5)
  1. CALCIUM CARBONATE [Concomitant]
     Dosage: UNK UKN, UNK
  2. MULTI-VITAMINS [Concomitant]
     Dosage: UNK UKN, UNK
  3. TEGRETOL [Suspect]
     Dosage: 200 MG, EIGHT TIMES DAILY
     Route: 048
  4. ASCORBIC ACID [Concomitant]
     Dosage: UNK UKN, UNK
  5. MYSOLINE [Suspect]
     Dosage: 250 MG, TID

REACTIONS (1)
  - COELIAC DISEASE [None]
